FAERS Safety Report 5508644-0 (Version None)
Quarter: 2007Q4

REPORT INFORMATION
  Report Type: 
  Country: None (occurrence: None)
  Receive Date: 20071107
  Receipt Date: 20071106
  Transmission Date: 20080405
  Serious: Yes (Other)
  Sender: FDA-Public Use
  Company Number: US-BAYER-200712949BWH

PATIENT
  Age: 31 Year
  Sex: Female

DRUGS (2)
  1. AVELOX [Suspect]
     Indication: PNEUMONIA
     Route: 048
     Dates: start: 20070826, end: 20070829
  2. LEVAQUIN [Concomitant]
     Indication: PNEUMONIA
     Dates: start: 20070801, end: 20070825

REACTIONS (4)
  - ARTHRALGIA [None]
  - BACK PAIN [None]
  - BLOOD URINE PRESENT [None]
  - RENAL PAIN [None]
